FAERS Safety Report 6958494-3 (Version None)
Quarter: 2010Q3

REPORT INFORMATION
  Report Type: 
  Country: None (occurrence: None)
  Receive Date: 20100831
  Receipt Date: 20100823
  Transmission Date: 20110219
  Serious: Yes (Hospitalization)
  Sender: FDA-Public Use
  Company Number: FR-JNJFOC-20100706429

PATIENT
  Sex: Male
  Weight: 64 kg

DRUGS (4)
  1. REMICADE [Suspect]
     Indication: COLITIS ULCERATIVE
     Route: 042
  2. AZATHIOPRINE [Concomitant]
     Indication: COLITIS ULCERATIVE
  3. SPASFON [Concomitant]
     Indication: ABDOMINAL PAIN
  4. POLARAMINE NOS [Concomitant]
     Indication: RHINITIS ALLERGIC

REACTIONS (1)
  - COLITIS ULCERATIVE [None]
